FAERS Safety Report 8499211-8 (Version None)
Quarter: 2012Q2

REPORT INFORMATION
  Report Type: 
  Country: None (occurrence: None)
  Receive Date: 20120612
  Receipt Date: 20120601
  Transmission Date: 20120825
  Serious: Yes (Life-Threatening, Hospitalization)
  Sender: FDA-Public Use
  Company Number: P0581

PATIENT
  Age: 71 Year
  Sex: Male
  Weight: 83.4 kg

DRUGS (7)
  1. COZAAR [Concomitant]
  2. CALCIUM/VIT D (CALCIUM CARBONATE, VITAMIN D NOS) [Concomitant]
  3. PROVENGE [Suspect]
     Indication: PROSTATE CANCER METASTATIC
     Dosage: INTRAVENOUS
     Route: 042
     Dates: start: 20120427, end: 20120427
  4. POTASSIUM CHLORIDE [Concomitant]
  5. AMLODIPINE [Concomitant]
  6. LUPRON [Concomitant]
  7. FISH OIL (FISH OIL) [Concomitant]

REACTIONS (2)
  - LOSS OF CONSCIOUSNESS [None]
  - ACUTE MYOCARDIAL INFARCTION [None]
